FAERS Safety Report 17000758 (Version 2)
Quarter: 2019Q4

REPORT INFORMATION
  Report Type: Spontaneous
  Country: AR (occurrence: AR)
  Receive Date: 20191106
  Receipt Date: 20191204
  Transmission Date: 20200122
  Serious: Yes (Other)
  Sender: FDA-Public Use
  Company Number: AR-AMGEN-ARGSP2019183806

PATIENT
  Age: 49 Year
  Sex: Female

DRUGS (3)
  1. METHOTREXATE SODIUM. [Concomitant]
     Active Substance: METHOTREXATE SODIUM
     Dosage: 25 MG, WEEKLY (INJECTION)
     Dates: end: 201908
  2. METHOTREXATE SODIUM. [Concomitant]
     Active Substance: METHOTREXATE SODIUM
     Dosage: UNK (WITH TABLETS)
     Dates: start: 2012
  3. ENBREL [Suspect]
     Active Substance: ETANERCEPT
     Indication: RHEUMATOID ARTHRITIS
     Dosage: 50 MILLIGRAM, QWK
     Route: 065
     Dates: start: 20180418

REACTIONS (5)
  - Meniscus injury [Not Recovered/Not Resolved]
  - Pain [Not Recovered/Not Resolved]
  - Liver disorder [Recovering/Resolving]
  - Drug ineffective [Not Recovered/Not Resolved]
  - Arthritis [Not Recovered/Not Resolved]

NARRATIVE: CASE EVENT DATE: 201906
